FAERS Safety Report 18272917 (Version 1)
Quarter: 2020Q3

REPORT INFORMATION
  Report Type: Spontaneous
  Country: US (occurrence: US)
  Receive Date: 20200916
  Receipt Date: 20200916
  Transmission Date: 20201103
  Serious: No
  Sender: FDA-Public Use
  Company Number: None

PATIENT
  Age: 37 Year
  Sex: Male
  Weight: 78.75 kg

DRUGS (6)
  1. DESVENLAFAXINE EXTENDED?RELEASE TABLETS [Suspect]
     Active Substance: DESVENLAFAXINE SUCCINATE
     Indication: ANXIETY
     Dosage: ?          QUANTITY:1.5 TABLET(S);?
     Route: 048
  2. FISH OIL [Concomitant]
     Active Substance: FISH OIL
  3. DESVENLAFAXINE EXTENDED?RELEASE TABLETS [Suspect]
     Active Substance: DESVENLAFAXINE SUCCINATE
     Indication: OBSESSIVE-COMPULSIVE DISORDER
     Dosage: ?          QUANTITY:1.5 TABLET(S);?
     Route: 048
  4. RITALIN [Concomitant]
     Active Substance: METHYLPHENIDATE HYDROCHLORIDE
  5. PRISTIQ EXTENDED?RELEASE [Concomitant]
     Active Substance: DESVENLAFAXINE SUCCINATE
  6. DESVENLAFAXINE EXTENDED?RELEASE TABLETS [Suspect]
     Active Substance: DESVENLAFAXINE SUCCINATE
     Indication: DEPRESSION
     Dosage: ?          QUANTITY:1.5 TABLET(S);?
     Route: 048

REACTIONS (8)
  - Drug ineffective [None]
  - Anxiety [None]
  - Paraesthesia [None]
  - Product substitution issue [None]
  - Obsessive thoughts [None]
  - Affective disorder [None]
  - Poor quality sleep [None]
  - Abnormal dreams [None]

NARRATIVE: CASE EVENT DATE: 20200911
